FAERS Safety Report 7220483-1 (Version None)
Quarter: 2010Q4

REPORT INFORMATION
  Report Type: 
  Country: None (occurrence: None)
  Receive Date: 20101229
  Receipt Date: 20101221
  Transmission Date: 20110411
  Serious: Yes (Hospitalization)
  Sender: FDA-Public Use
  Company Number: WAES 1010FRA00074

PATIENT
  Age: 83 Year
  Sex: Male

DRUGS (8)
  1. ZOLINZA [Suspect]
     Indication: MYELODYSPLASTIC SYNDROME
     Dosage: 400 MG/DAILY PO
     Route: 048
     Dates: start: 20101006, end: 20101016
  2. ZOLINZA [Suspect]
     Indication: MYELODYSPLASTIC SYNDROME
     Dosage: 400 MG/DAILY PO
     Route: 048
     Dates: start: 20101206, end: 20101219
  3. CYTARABINE [Suspect]
     Indication: MYELODYSPLASTIC SYNDROME
     Dosage: 18.2 MG/DAILY SC, 36.4 MG/DAILY SC
     Route: 058
     Dates: start: 20101006, end: 20101016
  4. CYTARABINE [Suspect]
     Indication: MYELODYSPLASTIC SYNDROME
     Dosage: 18.2 MG/DAILY SC, 36.4 MG/DAILY SC
     Route: 058
     Dates: start: 20101206, end: 20101219
  5. BROMAZEPAM [Concomitant]
  6. DIGOXIN [Concomitant]
  7. FUROSEMIDE [Concomitant]
  8. IVABRADINE HYDROCHLORIDE [Concomitant]

REACTIONS (3)
  - FEBRILE BONE MARROW APLASIA [None]
  - FEBRILE NEUTROPENIA [None]
  - SERRATIA TEST POSITIVE [None]
